FAERS Safety Report 7626453-3 (Version None)
Quarter: 2011Q3

REPORT INFORMATION
  Report Type: 
  Country: None (occurrence: None)
  Receive Date: 20110721
  Receipt Date: 20110718
  Transmission Date: 20111222
  Serious: Yes (Hospitalization)
  Sender: FDA-Public Use
  Company Number: PT-PFIZER INC-2011161650

PATIENT
  Age: 71 Year
  Sex: Male

DRUGS (2)
  1. CARDURA [Suspect]
     Indication: BENIGN PROSTATIC HYPERPLASIA
     Dosage: 8 MG, 1X/DAY
     Route: 048
     Dates: start: 20110622, end: 20110713
  2. OMEPRAZOLE [Concomitant]
     Dosage: UNK

REACTIONS (1)
  - RECTAL OBSTRUCTION [None]
